FAERS Safety Report 19485887 (Version 1)
Quarter: 2021Q3

REPORT INFORMATION
  Report Type: Spontaneous
  Country: US (occurrence: US)
  Receive Date: 20210701
  Receipt Date: 20210701
  Transmission Date: 20211014
  Serious: Yes (Hospitalization)
  Sender: FDA-Public Use
  Company Number: None

PATIENT
  Sex: Female

DRUGS (17)
  1. MOMETASONE [Concomitant]
     Active Substance: MOMETASONE
  2. TADALAFIL. [Suspect]
     Active Substance: TADALAFIL
     Indication: PULMONARY ARTERIAL HYPERTENSION
     Route: 048
     Dates: start: 20190629
  3. LOSARTAN POT [Concomitant]
     Active Substance: LOSARTAN POTASSIUM
  4. SYNTHROID [Concomitant]
     Active Substance: LEVOTHYROXINE SODIUM
  5. IPRATROPIUM SOL ALBUTER [Concomitant]
  6. LAXATIVE [Concomitant]
     Active Substance: UNSPECIFIED INGREDIENT
  7. LEVETIRACETA SOL [Concomitant]
  8. ARICEPT [Concomitant]
     Active Substance: DONEPEZIL HYDROCHLORIDE
  9. GABAPENTIN. [Concomitant]
     Active Substance: GABAPENTIN
  10. ALBUTEROL. [Concomitant]
     Active Substance: ALBUTEROL
  11. TOLTERODINE [Concomitant]
     Active Substance: TOLTERODINE
  12. OPSUMIT [Concomitant]
     Active Substance: MACITENTAN
  13. STOOL SOFTNR [Concomitant]
  14. ESCITALOPRAM [Concomitant]
     Active Substance: ESCITALOPRAM OXALATE
  15. OMEGA? 3 [Concomitant]
  16. METAMUCIL [Concomitant]
     Active Substance: PLANTAGO SEED
  17. MONTELUKAST [Concomitant]
     Active Substance: MONTELUKAST SODIUM

REACTIONS (1)
  - Lower limb fracture [None]
